FAERS Safety Report 6659726-1 (Version None)
Quarter: 2010Q1

REPORT INFORMATION
  Report Type: 
  Country: None (occurrence: None)
  Receive Date: 20100326
  Receipt Date: 20100312
  Transmission Date: 20100710
  Serious: Yes (Death)
  Sender: FDA-Public Use
  Company Number: 2010AL001490

PATIENT
  Age: 78 Year
  Sex: Male

DRUGS (22)
  1. METFORMIN HYDROCHLORIDE [Suspect]
     Indication: TYPE 2 DIABETES MELLITUS
     Dosage: 500 MG; PO
     Route: 048
     Dates: start: 20030209
  2. DUROFERON [Concomitant]
  3. CIPRALEX [Concomitant]
  4. AFIPRAN [Concomitant]
  5. BUMEX [Concomitant]
  6. SPIRIX [Concomitant]
  7. SOMAC [Concomitant]
  8. AMOXICILLIN [Concomitant]
  9. ACTRAPID [Concomitant]
  10. SOBRIL [Concomitant]
  11. LISINOPRIL [Concomitant]
  12. GLUCOSE [Concomitant]
  13. VITAMIN B-12 [Concomitant]
  14. PRAVASTATIN [Concomitant]
  15. MAREVAN [Concomitant]
  16. MADOPAR [Concomitant]
  17. FOLIC ACID [Concomitant]
  18. RISPERDAL [Concomitant]
  19. HIPREX [Concomitant]
  20. SINEMET [Concomitant]
  21. PARACET [Concomitant]
  22. ASCORBIC ACID [Concomitant]

REACTIONS (10)
  - BLOOD CALCIUM DECREASED [None]
  - BLOOD POTASSIUM INCREASED [None]
  - BLOOD PRESSURE DECREASED [None]
  - DRUG INEFFECTIVE [None]
  - DRUG LEVEL INCREASED [None]
  - HAEMOGLOBIN DECREASED [None]
  - INTERNATIONAL NORMALISED RATIO INCREASED [None]
  - LACTIC ACIDOSIS [None]
  - MALAISE [None]
  - URINARY TRACT INFECTION [None]
